FAERS Safety Report 6897091-5 (Version None)
Quarter: 2010Q3

REPORT INFORMATION
  Report Type: 
  Country: None (occurrence: None)
  Receive Date: 20100802
  Receipt Date: 20070404
  Transmission Date: 20110219
  Serious: No
  Sender: FDA-Public Use
  Company Number: US-PFIZER INC-2007027809

PATIENT
  Sex: Female

DRUGS (5)
  1. LYRICA [Suspect]
     Indication: NEURALGIA
     Dates: start: 20070322
  2. CARDIOVASCULAR SYSTEM DRUGS [Concomitant]
  3. DARVOCET [Concomitant]
  4. POTASSIUM [Concomitant]
  5. HERBAL NOS/MINERALS NOS [Concomitant]

REACTIONS (1)
  - OEDEMA PERIPHERAL [None]
